FAERS Safety Report 8602624-4 (Version None)
Quarter: 2012Q3

REPORT INFORMATION
  Report Type: 
  Country: None (occurrence: None)
  Receive Date: 20120817
  Receipt Date: 20120814
  Transmission Date: 20120928
  Serious: Yes (Death, Congenital Anomaly, Other)
  Sender: FDA-Public Use
  Company Number: US-ABBOTT-12P-163-0968576-00

PATIENT

DRUGS (3)
  1. NORVIR [Suspect]
     Indication: MATERNAL EXPOSURE TIMING UNSPECIFIED
     Route: 064
  2. REYATAZ [Suspect]
     Indication: MATERNAL EXPOSURE TIMING UNSPECIFIED
     Route: 064
  3. TRUVADA [Suspect]
     Indication: MATERNAL EXPOSURE TIMING UNSPECIFIED
     Route: 064

REACTIONS (3)
  - ABORTION SPONTANEOUS [None]
  - CONGENITAL ANOMALY [None]
  - FOETAL EXPOSURE DURING PREGNANCY [None]
